FAERS Safety Report 9517242 (Version 1)
Quarter: 2013Q3

REPORT INFORMATION
  Report Type: Spontaneous
  Country: US (occurrence: US)
  Receive Date: 20130911
  Receipt Date: 20130911
  Transmission Date: 20140515
  Serious: No
  Sender: FDA-Public Use
  Company Number: US-009507513-1309USA004712

PATIENT
  Sex: Male

DRUGS (2)
  1. DR. SCHOLL^S ONE STEP CORN REMOVERS [Suspect]
     Indication: PAIN
     Dosage: UNK, UNKNOWN
     Route: 061
     Dates: start: 2013
  2. DR. SCHOLL^S ONE STEP CORN REMOVERS [Suspect]
     Indication: HYPERKERATOSIS

REACTIONS (4)
  - Skin injury [Recovered/Resolved]
  - Application site discolouration [Unknown]
  - Product label confusion [Unknown]
  - Drug effect decreased [Unknown]
